FAERS Safety Report 9147211 (Version 2)
Quarter: 2013Q2

REPORT INFORMATION
  Report Type: Spontaneous
  Country: AU (occurrence: AU)
  Receive Date: 20130307
  Receipt Date: 20130502
  Transmission Date: 20140414
  Serious: Yes (Hospitalization, Other)
  Sender: FDA-Public Use
  Company Number: AU-CELGENEUS-008-20785-13023894

PATIENT
  Age: 51 Year
  Sex: Female

DRUGS (2)
  1. THALIDOMIDE [Suspect]
     Indication: PLASMA CELL MYELOMA
     Dosage: 100 MILLIGRAM
     Route: 048
     Dates: start: 20100512, end: 20120201
  2. DEXAMETHASONE [Concomitant]
     Indication: PLASMA CELL MYELOMA
     Route: 065

REACTIONS (4)
  - Optic neuritis [Recovered/Resolved]
  - CSF lymphocyte count increased [Recovered/Resolved]
  - Infection reactivation [Recovered/Resolved with Sequelae]
  - Meningitis aseptic [Unknown]
